FAERS Safety Report 8937148 (Version 1)
Quarter: 2012Q4

REPORT INFORMATION
  Report Type: Spontaneous
  Country: US (occurrence: None)
  Receive Date: 20121128
  Receipt Date: 20121128
  Transmission Date: 20130627
  Serious: Yes (Hospitalization)
  Sender: FDA-Public Use
  Company Number: None

PATIENT
  Age: 73 Year
  Sex: Female
  Weight: 75.5 kg

DRUGS (14)
  1. ASA [Suspect]
     Dosage: 81MG DAILY PO
     Route: 048
  2. MIRTAZAPINE [Concomitant]
  3. NEXIUM [Concomitant]
  4. KLONOPIN [Concomitant]
  5. PAXIL [Concomitant]
  6. SYNTHROID [Concomitant]
  7. FENOFIBRATE [Concomitant]
  8. LISINOPRIL/HCTZ [Concomitant]
  9. SEROQUEL [Concomitant]
  10. VICODIN [Concomitant]
  11. GLIMEPIRIDE [Concomitant]
  12. VIT D [Concomitant]
  13. PULMICORT [Concomitant]
  14. ALBUTEROL [Concomitant]

REACTIONS (11)
  - Hiatus hernia [None]
  - Renal failure acute [None]
  - Hypovolaemia [None]
  - Blood pressure diastolic decreased [None]
  - Abdominal pain [None]
  - Haematemesis [None]
  - Melaena [None]
  - Haemoglobin decreased [None]
  - Gastrointestinal haemorrhage [None]
  - Diarrhoea [None]
  - Gastric disorder [None]
